FAERS Safety Report 7000413-8 (Version None)
Quarter: 2010Q3

REPORT INFORMATION
  Report Type: 
  Country: None (occurrence: None)
  Receive Date: 20100920
  Receipt Date: 20090925
  Transmission Date: 20110219
  Serious: No
  Sender: FDA-Public Use
  Company Number: US-ASTRAZENECA-2009SE15712

PATIENT
  Age: 28 Year
  Sex: Female
  Weight: 61.2 kg

DRUGS (6)
  1. SEROQUEL [Suspect]
     Indication: ATTENTION DEFICIT/HYPERACTIVITY DISORDER
     Route: 048
     Dates: start: 20090801
  2. SEROQUEL [Suspect]
     Indication: BIPOLAR DISORDER
     Route: 048
     Dates: start: 20090801
  3. LAMICTAL [Concomitant]
  4. RITALIN [Concomitant]
  5. BIRTH CONTROL [Concomitant]
  6. MULTI-VITAMINS [Concomitant]

REACTIONS (6)
  - CRYING [None]
  - DEPRESSED MOOD [None]
  - DYSPNOEA [None]
  - FATIGUE [None]
  - MUSCLE TWITCHING [None]
  - MYALGIA [None]
